FAERS Safety Report 5003229-7 (Version None)
Quarter: 2006Q2

REPORT INFORMATION
  Report Type: 
  Country: None (occurrence: None)
  Receive Date: 20060516
  Receipt Date: 20060510
  Transmission Date: 20061013
  Serious: Yes (Hospitalization)
  Sender: FDA-Public Use
  Company Number: US-BRISTOL-MYERS SQUIBB COMPANY-13373782

PATIENT
  Age: 47 Year
  Sex: Female

DRUGS (3)
  1. ERBITUX [Suspect]
     Indication: BREAST CANCER METASTATIC
  2. CARBOPLATIN [Suspect]
     Indication: BREAST CANCER METASTATIC
  3. IRINOTECAN [Suspect]
     Indication: BREAST CANCER METASTATIC

REACTIONS (1)
  - DEHYDRATION [None]
